FAERS Safety Report 8512030-9 (Version None)
Quarter: 2012Q3

REPORT INFORMATION
  Report Type: 
  Country: None (occurrence: None)
  Receive Date: 20120716
  Receipt Date: 20120706
  Transmission Date: 20120928
  Serious: Yes (Hospitalization, Other)
  Sender: FDA-Public Use
  Company Number: US-BAYER-2012-022220

PATIENT
  Age: 28 Year
  Sex: Female

DRUGS (11)
  1. YASMIN [Suspect]
     Dosage: UNK
     Dates: start: 20070901
  2. BIAXIN XL [Concomitant]
     Dosage: 500 MG, 2 EVERY DAY
     Route: 048
     Dates: start: 20080208
  3. ZEGERID [Concomitant]
     Dosage: UNK
  4. NEXIUM [Concomitant]
     Dosage: UNK
     Route: 048
     Dates: start: 20080208
  5. SYMBICORT [Concomitant]
     Dosage: 80/4.5, 2 TWICE A DAY
     Route: 045
     Dates: start: 20080208
  6. VICODIN [Concomitant]
  7. GLUCOPHAGE [Concomitant]
     Dosage: 500 MG, TIW
     Route: 048
     Dates: start: 20080208
  8. YAZ [Suspect]
     Dosage: UNK
     Dates: start: 20070901
  9. ANTIBIOTICS [Concomitant]
  10. CIPROFLOXACIN HCL [Concomitant]
     Dosage: 500 MG, BID
  11. FLAGYL [Concomitant]
     Dosage: 500 MG, TID

REACTIONS (5)
  - COLITIS ISCHAEMIC [None]
  - THROMBOSIS [None]
  - PAIN [None]
  - INJURY [None]
  - FEAR OF DISEASE [None]
